FAERS Safety Report 9059225 (Version 1)
Quarter: 2013Q1

REPORT INFORMATION
  Report Type: Spontaneous
  Country: CN (occurrence: CN)
  Receive Date: 20130211
  Receipt Date: 20130211
  Transmission Date: 20140127
  Serious: Yes (Life-Threatening)
  Sender: FDA-Public Use
  Company Number: CN-ASTRAZENECA-2013SE08803

PATIENT
  Age: 77 Year
  Sex: Female
  Weight: 45 kg

DRUGS (5)
  1. DIPRIVAN [Suspect]
     Route: 042
     Dates: start: 20130206
  2. REMIFENTANIL [Concomitant]
  3. METOPROLOL [Concomitant]
  4. MIDAZOLAM [Concomitant]
  5. PROPOLOL [Concomitant]

REACTIONS (9)
  - Coma [Unknown]
  - Heart rate increased [Unknown]
  - Blood pressure increased [Unknown]
  - Musculoskeletal stiffness [Unknown]
  - Nuchal rigidity [Unknown]
  - Facial spasm [Not Recovered/Not Resolved]
  - Opisthotonus [Unknown]
  - Wheezing [Unknown]
  - Muscle twitching [Unknown]
